FAERS Safety Report 19911534 (Version 1)
Quarter: 2021Q4

REPORT INFORMATION
  Report Type: Spontaneous
  Country: EG (occurrence: EG)
  Receive Date: 20211001
  Receipt Date: 20211001
  Transmission Date: 20220303
  Serious: Yes (Other)
  Sender: FDA-Public Use
  Company Number: None

PATIENT
  Age: 46 Year
  Sex: Male
  Weight: 87 kg

DRUGS (2)
  1. OTRIVIN [Suspect]
     Active Substance: XYLOMETAZOLINE
  2. OTRIVIN [Concomitant]
     Active Substance: XYLOMETAZOLINE

REACTIONS (7)
  - Rebound nasal congestion [None]
  - Suffocation feeling [None]
  - Headache [None]
  - Memory impairment [None]
  - Nasal congestion [None]
  - Nasal dryness [None]
  - Mental disorder [None]

NARRATIVE: CASE EVENT DATE: 20111001
